FAERS Safety Report 7562057-9 (Version None)
Quarter: 2011Q2

REPORT INFORMATION
  Report Type: 
  Country: None (occurrence: None)
  Receive Date: 20110622
  Receipt Date: 20101012
  Transmission Date: 20111010
  Serious: Yes (Other)
  Sender: FDA-Public Use
  Company Number: PHHY2010DE92270

PATIENT
  Sex: Female
  Weight: 69 kg

DRUGS (6)
  1. SANDOSTATIN LAR [Suspect]
     Dosage: 10 MG
     Route: 030
  2. SANDOSTATIN LAR [Suspect]
     Dosage: 20 MG
     Route: 030
     Dates: start: 20101012
  3. DEKRISTOL [Concomitant]
     Dosage: 2 MG
  4. LEVOTHYROXINE SODIUM [Concomitant]
     Dosage: 75 MG
  5. BISOPROLOL FUMARATE [Concomitant]
     Dosage: 2.5 MG
  6. CALCIUM-SANDOZ FORTISSIMUM [Concomitant]
     Dosage: 1500 MG

REACTIONS (3)
  - RESTLESSNESS [None]
  - DIPLOPIA [None]
  - FAECES DISCOLOURED [None]
